FAERS Safety Report 5127130-3 (Version None)
Quarter: 2006Q4

REPORT INFORMATION
  Report Type: 
  Country: None (occurrence: None)
  Receive Date: 20061013
  Receipt Date: 20061009
  Transmission Date: 20070319
  Serious: Yes (Hospitalization)
  Sender: FDA-Public Use
  Company Number: 2006AC01850

PATIENT
  Age: 21 Year
  Sex: Male
  Weight: 78 kg

DRUGS (10)
  1. BUPIVACAINE [Suspect]
     Indication: POSTOPERATIVE ANALGESIA
     Route: 053
  2. MIDAZOLAM HYDROCHLORIDE [Concomitant]
     Indication: SEDATIVE THERAPY
     Route: 042
  3. FENTANYL [Concomitant]
     Indication: SEDATIVE THERAPY
     Route: 042
  4. FENTANYL [Concomitant]
     Indication: INDUCTION OF ANAESTHESIA
     Route: 042
  5. FENTANYL [Concomitant]
     Route: 042
  6. FENTANYL [Concomitant]
     Route: 042
  7. CHLORHEXIDINE [Concomitant]
  8. PROPOFOL [Concomitant]
     Indication: INDUCTION OF ANAESTHESIA
     Route: 042
  9. ROCURONIUM [Concomitant]
     Indication: INDUCTION OF ANAESTHESIA
     Route: 042
  10. INHALATION AGENT [Concomitant]
     Indication: MAINTENANCE OF ANAESTHESIA
     Route: 055

REACTIONS (1)
  - THERAPEUTIC RESPONSE PROLONGED [None]
